FAERS Safety Report 6431149-X (Version None)
Quarter: 2009Q4

REPORT INFORMATION
  Report Type: 
  Country: None (occurrence: None)
  Receive Date: 20091106
  Receipt Date: 20091030
  Transmission Date: 20100525
  Serious: Yes (Hospitalization)
  Sender: FDA-Public Use
  Company Number: CHPA2009SE21493

PATIENT
  Sex: Male

DRUGS (7)
  1. SCOPODERM TTS (NCH) [Suspect]
     Indication: SALIVARY HYPERSECRETION
     Dosage: 1 MG, Q72H
     Route: 062
     Dates: start: 20090722, end: 20090723
  2. SEROQUEL [Concomitant]
     Dosage: 25 MG, UNK
  3. FLORINEF [Concomitant]
     Dosage: 0.1 MG , UNK
  4. DUROFERON [Concomitant]
     Dosage: 100 MG FE2+, UNK
  5. KALEORID [Concomitant]
     Dosage: 750 MG, UNK
  6. MADOPARK [Concomitant]
  7. SODIUM CHLORIDE [Concomitant]
     Dosage: 500 MG, UNK

REACTIONS (3)
  - MENTAL STATUS CHANGES [None]
  - OFF LABEL USE [None]
  - SOMNOLENCE [None]
